FAERS Safety Report 20909720 (Version 1)
Quarter: 2022Q2

REPORT INFORMATION
  Report Type: Spontaneous
  Country: US (occurrence: US)
  Receive Date: 20220603
  Receipt Date: 20220603
  Transmission Date: 20220721
  Serious: Yes (Other)
  Sender: FDA-Public Use
  Company Number: US-SA-SAC20220531000492

PATIENT
  Age: 55 Year
  Sex: Female

DRUGS (1)
  1. ZANTAC [Suspect]
     Active Substance: RANITIDINE HYDROCHLORIDE
     Indication: Dyspepsia
     Dosage: UNKNOWN AT THIS TIME FREQUENCY : OTHER
     Route: 065
     Dates: start: 199002, end: 201404

REACTIONS (2)
  - Uterine cancer [Unknown]
  - Ovarian cancer stage I [Unknown]

NARRATIVE: CASE EVENT DATE: 20180919
